FAERS Safety Report 19982584 (Version 2)
Quarter: 2021Q4

REPORT INFORMATION
  Report Type: Report from Study
  Country: CA (occurrence: CA)
  Receive Date: 20211022
  Receipt Date: 20211026
  Transmission Date: 20220303
  Serious: Yes (Other)
  Sender: FDA-Public Use
  Company Number: CA-BAUSCH-BL-2021-033945

PATIENT
  Age: 57 Year
  Sex: Female

DRUGS (4)
  1. SILIQ [Suspect]
     Active Substance: BRODALUMAB
     Indication: Psoriasis
     Dosage: 210 MG/1.5 ML, WEEKLY FOR WEEK 0, 1, AND 2, AND THEN EVERY OTHER WEEK
     Route: 058
     Dates: start: 20201113, end: 202011
  2. SILIQ [Suspect]
     Active Substance: BRODALUMAB
     Dosage: 210 MG/1.5 ML, WEEKLY FOR WEEK 0, 1, AND 2, AND THEN EVERY OTHER WEEK
     Route: 058
     Dates: start: 202105
  3. SILIQ [Suspect]
     Active Substance: BRODALUMAB
     Dosage: 210 MG/1.5 ML, WEEKLY FOR WEEK 0, 1, AND 2, AND THEN EVERY OTHER WEEK
     Route: 058
     Dates: start: 202108
  4. SILIQ [Suspect]
     Active Substance: BRODALUMAB
     Dosage: ANOTHER ONE THE DAY AFTER HER LAST INJECTION
     Route: 058
     Dates: start: 2021, end: 2021

REACTIONS (7)
  - Mastitis [Unknown]
  - Pain [Unknown]
  - Pruritus genital [Not Recovered/Not Resolved]
  - Therapeutic product effect incomplete [Unknown]
  - Treatment noncompliance [Unknown]
  - Product dose omission issue [Unknown]
  - Therapy interrupted [Unknown]

NARRATIVE: CASE EVENT DATE: 20210501
